FAERS Safety Report 13376955 (Version 1)
Quarter: 2017Q1

REPORT INFORMATION
  Report Type: Spontaneous
  Country: US (occurrence: US)
  Receive Date: 20170328
  Receipt Date: 20170328
  Transmission Date: 20170429
  Serious: Yes (Other)
  Sender: FDA-Public Use
  Company Number: None

PATIENT
  Age: 59 Year
  Sex: Female
  Weight: 91 kg

DRUGS (4)
  1. NEUTROGENA RAPID TONE REPAIR SUNSCREEN SPF30 [Suspect]
     Active Substance: AVOBENZONE\HOMOSALATE\OCTISALATE\OCTOCRYLENE
     Indication: SKIN WRINKLING
     Dosage: PEARL SIZE, 2X, TOPICAL
     Route: 061
     Dates: start: 20170309, end: 20170310
  2. NTG RAPID WRINKLE REPAIR REGENERATING CREAM [Suspect]
     Active Substance: COSMETICS
     Indication: SKIN WRINKLING
     Dosage: PEARL SIZE, 1X, TOPICAL
     Route: 061
     Dates: start: 20170308, end: 20170309
  3. NEUTROGENA OIL FREE EYE MAKEUP REMOVER [Suspect]
     Active Substance: COSMETICS
     Indication: PRODUCT USED FOR UNKNOWN INDICATION
     Dosage: BIT AMOUNT ON COTTON BALL ONCE, TOPICAL
     Route: 061
     Dates: start: 20170308, end: 20170308
  4. NEUTROGENA MAKE UP REMOVER CLEANSING TOWLETTES [Suspect]
     Active Substance: COSMETICS
     Indication: PRODUCT USED FOR UNKNOWN INDICATION
     Dosage: ONE TOWLETTE ONCE, TOPICAL
     Route: 061
     Dates: start: 20170309, end: 20170309

REACTIONS (9)
  - Eye swelling [None]
  - Erythema [None]
  - Drug ineffective [None]
  - Eye pain [None]
  - Skin wrinkling [None]
  - Burning sensation [None]
  - Skin disorder [None]
  - Skin irritation [None]
  - Ocular hyperaemia [None]

NARRATIVE: CASE EVENT DATE: 20170309
